FAERS Safety Report 21815832 (Version 1)
Quarter: 2023Q1

REPORT INFORMATION
  Report Type: Report from Study
  Country: BR (occurrence: BR)
  Receive Date: 20230104
  Receipt Date: 20230104
  Transmission Date: 20230417
  Serious: Yes (Other)
  Sender: FDA-Public Use
  Company Number: BR-JNJFOC-20220202881

PATIENT
  Age: 3 Decade
  Sex: Female
  Weight: 47 kg

DRUGS (2)
  1. REMICADE [Suspect]
     Active Substance: INFLIXIMAB
     Indication: Crohn^s disease
     Route: 041
     Dates: start: 20180315, end: 2020
  2. REMICADE [Suspect]
     Active Substance: INFLIXIMAB
     Route: 041
     Dates: end: 20220131

REACTIONS (7)
  - Lupus-like syndrome [Unknown]
  - Crohn^s disease [Unknown]
  - Myocarditis [Unknown]
  - Congestive cardiomyopathy [Unknown]
  - Post procedural infection [Unknown]
  - Drug specific antibody [Unknown]
  - Abscess [Unknown]

NARRATIVE: CASE EVENT DATE: 20200101
